FAERS Safety Report 9222287 (Version 1)
Quarter: 2013Q2

REPORT INFORMATION
  Report Type: Spontaneous
  Country: US (occurrence: US)
  Receive Date: 20130410
  Receipt Date: 20130410
  Transmission Date: 20140414
  Serious: Yes (Other)
  Sender: FDA-Public Use
  Company Number: US-SANOFI-AVENTIS-2012SA082555

PATIENT
  Age: 59 Year
  Sex: Male

DRUGS (5)
  1. LANTUS SOLOSTAR [Suspect]
     Indication: TYPE 2 DIABETES MELLITUS
     Dosage: PRODUCT START DATE MENTIONED AS 3 YEARS AGO
     Route: 051
     Dates: start: 20120909
  2. SOLOSTAR [Suspect]
     Indication: TYPE 2 DIABETES MELLITUS
     Dosage: PRODUCT START DATE MENTIONED AS 3 YEARS AGO
     Dates: start: 20120909
  3. BUSPAR [Concomitant]
  4. ENALAPRIL [Concomitant]
  5. FELDENE [Concomitant]

REACTIONS (4)
  - Eye haemorrhage [Unknown]
  - Blindness [Unknown]
  - Blood pressure increased [Recovered/Resolved]
  - Injection site pain [Recovered/Resolved]
